FAERS Safety Report 13512010 (Version 3)
Quarter: 2018Q2

REPORT INFORMATION
  Report Type: Spontaneous
  Country: US (occurrence: US)
  Receive Date: 20170504
  Receipt Date: 20180608
  Transmission Date: 20180711
  Serious: No
  Sender: FDA-Public Use
  Company Number: US-PFIZER INC-2017192775

PATIENT
  Age: 53 Year
  Sex: Female

DRUGS (1)
  1. IBRANCE [Suspect]
     Active Substance: PALBOCICLIB
     Dosage: 125 MG, CYCLIC (QD X 21 D, THEN 7 D OFF)
     Route: 048
     Dates: start: 20170420

REACTIONS (5)
  - Dysgeusia [Unknown]
  - Abdominal discomfort [Unknown]
  - Alopecia [Unknown]
  - Fatigue [Unknown]
  - Chills [Unknown]
